FAERS Safety Report 17449769 (Version 1)
Quarter: 2020Q1

REPORT INFORMATION
  Report Type: Spontaneous
  Country: US (occurrence: US)
  Receive Date: 20200208
  Receipt Date: 20200208
  Transmission Date: 20200409
  Serious: No
  Sender: FDA-Public Use
  Company Number: None

PATIENT
  Age: 81 Year
  Sex: Female

DRUGS (1)
  1. OCTREOTIDE INJ 100MCG [Suspect]
     Active Substance: OCTREOTIDE
     Indication: GASTROOESOPHAGEAL REFLUX DISEASE
     Route: 058
     Dates: start: 202001

REACTIONS (2)
  - Incorrect dose administered [None]
  - Treatment noncompliance [None]

NARRATIVE: CASE EVENT DATE: 20200208
